FAERS Safety Report 16287500 (Version 2)
Quarter: 2019Q4

REPORT INFORMATION
  Report Type: Spontaneous
  Country: US (occurrence: US)
  Receive Date: 20190508
  Receipt Date: 20191029
  Transmission Date: 20200122
  Serious: Yes (Death, Other)
  Sender: FDA-Public Use
  Company Number: US-ASTRAZENECA-2019SE10059

PATIENT
  Age: 18508 Day
  Sex: Female
  Weight: 74.4 kg

DRUGS (20)
  1. PREDNISONE. [Concomitant]
     Active Substance: PREDNISONE
     Route: 065
  2. WARFARIN [Concomitant]
     Active Substance: WARFARIN
     Route: 065
  3. NEXIUM [Suspect]
     Active Substance: ESOMEPRAZOLE MAGNESIUM
     Indication: GASTROOESOPHAGEAL REFLUX DISEASE
     Route: 048
  4. NEXIUM [Suspect]
     Active Substance: ESOMEPRAZOLE MAGNESIUM
     Indication: GASTROOESOPHAGEAL REFLUX DISEASE
     Route: 048
     Dates: start: 2012, end: 2013
  5. ZOLPIDEM [Concomitant]
     Active Substance: ZOLPIDEM TARTRATE
     Route: 065
  6. TRAMADOL. [Concomitant]
     Active Substance: TRAMADOL
     Route: 065
  7. PANTOPRAZOLE [Suspect]
     Active Substance: PANTOPRAZOLE
     Indication: GASTROOESOPHAGEAL REFLUX DISEASE
     Route: 065
     Dates: start: 2015, end: 2016
  8. SODIUM BICARBONATE. [Concomitant]
     Active Substance: SODIUM BICARBONATE
     Route: 065
  9. LIDOCAINE PRILOCAINE [Concomitant]
     Active Substance: LIDOCAINE\PRILOCAINE
     Route: 065
  10. LORATADINE. [Concomitant]
     Active Substance: LORATADINE
     Route: 065
  11. FUROSEMIDE. [Concomitant]
     Active Substance: FUROSEMIDE
     Route: 065
  12. FLUTICASONE. [Concomitant]
     Active Substance: FLUTICASONE
     Route: 065
  13. HYDROCHLOROTHIAZIDE. [Concomitant]
     Active Substance: HYDROCHLOROTHIAZIDE
     Route: 065
  14. TORSEMIDE. [Concomitant]
     Active Substance: TORSEMIDE
     Route: 065
  15. CARVEDILOL. [Concomitant]
     Active Substance: CARVEDILOL
     Route: 065
  16. NEXIUM [Suspect]
     Active Substance: ESOMEPRAZOLE MAGNESIUM
     Indication: GASTROOESOPHAGEAL REFLUX DISEASE
     Dosage: GENERIC
     Route: 065
     Dates: start: 2013, end: 2015
  17. ATORVASTATIN [Concomitant]
     Active Substance: ATORVASTATIN
     Route: 065
  18. CYCLOBENZAPRINE. [Concomitant]
     Active Substance: CYCLOBENZAPRINE
     Route: 065
  19. CETRIZINE [Concomitant]
     Active Substance: CETIRIZINE HYDROCHLORIDE
     Route: 065
  20. ALBUTEROL. [Concomitant]
     Active Substance: ALBUTEROL
     Route: 065

REACTIONS (6)
  - Renal injury [Unknown]
  - Rebound acid hypersecretion [Unknown]
  - Chronic kidney disease [Not Recovered/Not Resolved]
  - Renal failure [Unknown]
  - End stage renal disease [Unknown]
  - Death [Fatal]

NARRATIVE: CASE EVENT DATE: 20150804
